FAERS Safety Report 17500660 (Version 1)
Quarter: 2020Q1

REPORT INFORMATION
  Report Type: Spontaneous
  Country: FR (occurrence: FR)
  Receive Date: 20200305
  Receipt Date: 20200305
  Transmission Date: 20200409
  Serious: Yes (Other)
  Sender: FDA-Public Use
  Company Number: FR-SUN PHARMACEUTICAL INDUSTRIES LTD-2020RR-239343

PATIENT
  Age: 11 Year
  Sex: Male
  Weight: 46 kg

DRUGS (11)
  1. FENOFIBRATE. [Suspect]
     Active Substance: FENOFIBRATE
     Indication: MEDULLOBLASTOMA RECURRENT
     Dosage: 90 MILLIGRAM/SQ. METER, DAILY
     Route: 048
     Dates: start: 20190429
  2. CYCLOPHOSPHAMIDE. [Suspect]
     Active Substance: CYCLOPHOSPHAMIDE
     Indication: MEDULLOBLASTOMA RECURRENT
     Dosage: 2,5MG/KG (MAX 100MG), LES 3 DERNIERES SEMAINES DE CHAQUE PARTIE DE CHAQUE CYCLE 2.5 MILLIGRAM/KIL...
     Route: 048
     Dates: start: 20190520
  3. CELECOXIB. [Suspect]
     Active Substance: CELECOXIB
     Indication: MEDULLOBLASTOMA RECURRENT
     Dosage: QD
     Route: 048
     Dates: start: 20190429
  4. AVASTIN [Suspect]
     Active Substance: BEVACIZUMAB
     Indication: MEDULLOBLASTOMA RECURRENT
     Dosage: 10 MILLIGRAM/KILOGRAM, 1/WEEK
     Route: 042
     Dates: start: 20190429
  5. ETOPOSIDE. [Suspect]
     Active Substance: ETOPOSIDE
     Dosage: 35-50MG/M^2, LES 3 PREMIERES SEMAINES DE CHAQUE PARTIE DE CHAQUE CYCLE ()
     Route: 048
     Dates: start: 20190429
  6. CYTARABINE. [Suspect]
     Active Substance: CYTARABINE
     Indication: MEDULLOBLASTOMA RECURRENT
     Dosage: 60 MILLIGRAM, 1/WEEK
     Route: 037
     Dates: start: 20190513
  7. ETOPOSIDE. [Suspect]
     Active Substance: ETOPOSIDE
     Indication: MEDULLOBLASTOMA RECURRENT
     Dosage: 5 INJECTIONS TOUTES LES 4SEMAINES ()
     Route: 039
     Dates: start: 20190429
  8. ENANTONE LP [Suspect]
     Active Substance: LEUPROLIDE ACETATE
     Indication: BLOOD GROWTH HORMONE DECREASED
     Dosage: 1 DOSAGE FORM/ 28 DAYS
     Route: 058
     Dates: start: 201910
  9. SULFAMETHOXAZOLE [Concomitant]
     Active Substance: SULFAMETHOXAZOLE
     Indication: OPPORTUNISTIC INFECTION PROPHYLAXIS
     Dosage: 800 MILLIGRAMS 1/WEEK
     Route: 048
  10. TRIMETHOPRIME [Concomitant]
     Active Substance: TRIMETHOPRIM
     Indication: OPPORTUNISTIC INFECTION PROPHYLAXIS
     Dosage: 160 MILLIGRAM, 1/WEEK
     Route: 048
  11. THALIDOMIDE [Suspect]
     Active Substance: THALIDOMIDE
     Indication: MEDULLOBLASTOMA RECURRENT
     Dosage: 3 MILLIGRAM/KILOGRAM, UNK
     Route: 048
     Dates: start: 20190429, end: 20191115

REACTIONS (2)
  - Condition aggravated [Not Recovered/Not Resolved]
  - Bipolar disorder [Not Recovered/Not Resolved]

NARRATIVE: CASE EVENT DATE: 201910
